FAERS Safety Report 9033084 (Version 1)
Quarter: 2013Q1

REPORT INFORMATION
  Report Type: Spontaneous
  Country: US (occurrence: US)
  Receive Date: 20130128
  Receipt Date: 20130128
  Transmission Date: 20140127
  Serious: Yes (Other)
  Sender: FDA-Public Use
  Company Number: US-PFIZER INC-2013028325

PATIENT
  Age: 60 Year
  Sex: Male

DRUGS (1)
  1. AZULFIDINE [Suspect]
     Indication: CROHN^S DISEASE
     Dosage: UNK

REACTIONS (4)
  - Type 2 diabetes mellitus [Unknown]
  - Psoriatic arthropathy [Unknown]
  - Psoriasis [Unknown]
  - Sleep apnoea syndrome [Unknown]
